FAERS Safety Report 4454939-1 (Version None)
Quarter: 2004Q3

REPORT INFORMATION
  Report Type: 
  Country: None (occurrence: None)
  Receive Date: 20040921
  Receipt Date: 20040909
  Transmission Date: 20050211
  Serious: Yes (Death)
  Sender: FDA-Public Use
  Company Number: US-ROCHE-380325

PATIENT
  Age: 73 Year
  Sex: Male

DRUGS (1)
  1. VESANOID [Suspect]
     Route: 048
     Dates: start: 20040905, end: 20040906

REACTIONS (4)
  - MYOCARDIAL INFARCTION [None]
  - PULMONARY HAEMORRHAGE [None]
  - RENAL FAILURE [None]
  - RESPIRATORY FAILURE [None]
